FAERS Safety Report 20940499 (Version 2)
Quarter: 2022Q3

REPORT INFORMATION
  Report Type: Spontaneous
  Country: CN (occurrence: CN)
  Receive Date: 20220609
  Receipt Date: 20220706
  Transmission Date: 20221027
  Serious: Yes (Other)
  Sender: FDA-Public Use
  Company Number: CN-ABBVIE-22K-035-4423585-00

PATIENT
  Age: 42 Year
  Sex: Male

DRUGS (38)
  1. VENETOCLAX [Suspect]
     Active Substance: VENETOCLAX
     Indication: Acute myeloid leukaemia
     Dosage: FIRST DAY
     Route: 048
  2. VENETOCLAX [Suspect]
     Active Substance: VENETOCLAX
     Dosage: ON THE SECOND DAY
     Route: 048
  3. VENETOCLAX [Suspect]
     Active Substance: VENETOCLAX
     Dosage: ON THE THIRD DAY AND MAINTAINED UNTIL THE 14TH DAY.
     Route: 048
  4. VENETOCLAX [Suspect]
     Active Substance: VENETOCLAX
     Dosage: CYCLE 2
     Route: 048
  5. VENETOCLAX [Suspect]
     Active Substance: VENETOCLAX
     Dosage: CYCLE 3
     Route: 048
  6. VENETOCLAX [Suspect]
     Active Substance: VENETOCLAX
     Dosage: CYCLE 4
     Route: 048
  7. VENETOCLAX [Suspect]
     Active Substance: VENETOCLAX
     Dosage: CYCLE 5
     Route: 048
  8. AZACITIDINE [Suspect]
     Active Substance: AZACITIDINE
     Indication: Acute myeloid leukaemia
     Dosage: DAY 1 TO  7
     Route: 058
  9. AZACITIDINE [Suspect]
     Active Substance: AZACITIDINE
     Route: 058
  10. AZACITIDINE [Suspect]
     Active Substance: AZACITIDINE
     Route: 058
  11. AZACITIDINE [Suspect]
     Active Substance: AZACITIDINE
     Route: 058
  12. AZACITIDINE [Suspect]
     Active Substance: AZACITIDINE
     Route: 058
  13. OMACETAXINE MEPESUCCINATE [Suspect]
     Active Substance: OMACETAXINE MEPESUCCINATE
     Indication: Acute myeloid leukaemia
     Dosage: ON DAY 3 TO 9
     Route: 065
  14. OMACETAXINE MEPESUCCINATE [Suspect]
     Active Substance: OMACETAXINE MEPESUCCINATE
     Route: 065
  15. OMACETAXINE MEPESUCCINATE [Suspect]
     Active Substance: OMACETAXINE MEPESUCCINATE
     Route: 065
  16. OMACETAXINE MEPESUCCINATE [Suspect]
     Active Substance: OMACETAXINE MEPESUCCINATE
     Route: 065
  17. OMACETAXINE MEPESUCCINATE [Suspect]
     Active Substance: OMACETAXINE MEPESUCCINATE
     Route: 065
  18. ACLARUBICIN HYDROCHLORIDE [Suspect]
     Active Substance: ACLARUBICIN HYDROCHLORIDE
     Indication: Acute myeloid leukaemia
     Dosage: ON THE 3RD TO 6TH DAY
     Route: 058
  19. ACLARUBICIN HYDROCHLORIDE [Suspect]
     Active Substance: ACLARUBICIN HYDROCHLORIDE
     Route: 058
  20. ACLARUBICIN HYDROCHLORIDE [Suspect]
     Active Substance: ACLARUBICIN HYDROCHLORIDE
     Route: 058
  21. ACLARUBICIN HYDROCHLORIDE [Suspect]
     Active Substance: ACLARUBICIN HYDROCHLORIDE
     Route: 058
  22. ACLARUBICIN HYDROCHLORIDE [Suspect]
     Active Substance: ACLARUBICIN HYDROCHLORIDE
     Route: 058
  23. CYTARABINE [Suspect]
     Active Substance: CYTARABINE
     Indication: Acute myeloid leukaemia
     Dosage: ON DAY 3 TO 9
     Route: 058
  24. CYTARABINE [Suspect]
     Active Substance: CYTARABINE
     Route: 058
  25. CYTARABINE [Suspect]
     Active Substance: CYTARABINE
     Route: 058
  26. CYTARABINE [Suspect]
     Active Substance: CYTARABINE
     Route: 058
  27. CYTARABINE [Suspect]
     Active Substance: CYTARABINE
     Route: 058
  28. GRANULOCYTE COLONY-STIMULATING FACTOR NOS [Suspect]
     Active Substance: GRANULOCYTE COLONY-STIMULATING FACTOR NOS
     Indication: Acute myeloid leukaemia
     Dosage: ON DAY 1
     Route: 058
  29. GRANULOCYTE COLONY-STIMULATING FACTOR NOS [Suspect]
     Active Substance: GRANULOCYTE COLONY-STIMULATING FACTOR NOS
     Route: 058
  30. GRANULOCYTE COLONY-STIMULATING FACTOR NOS [Suspect]
     Active Substance: GRANULOCYTE COLONY-STIMULATING FACTOR NOS
     Route: 058
  31. GRANULOCYTE COLONY-STIMULATING FACTOR NOS [Suspect]
     Active Substance: GRANULOCYTE COLONY-STIMULATING FACTOR NOS
     Route: 058
  32. GRANULOCYTE COLONY-STIMULATING FACTOR NOS [Suspect]
     Active Substance: GRANULOCYTE COLONY-STIMULATING FACTOR NOS
     Route: 058
  33. DECITABINE [Suspect]
     Active Substance: DECITABINE
     Indication: Acute myeloid leukaemia
     Route: 065
  34. IDARUBICIN [Suspect]
     Active Substance: IDARUBICIN
     Indication: Acute myeloid leukaemia
     Route: 065
  35. IDARUBICIN [Suspect]
     Active Substance: IDARUBICIN
     Route: 065
  36. IDARUBICIN [Suspect]
     Active Substance: IDARUBICIN
     Route: 065
  37. IDARUBICIN [Suspect]
     Active Substance: IDARUBICIN
     Route: 065
  38. IDARUBICIN [Suspect]
     Active Substance: IDARUBICIN
     Route: 065

REACTIONS (4)
  - Myelosuppression [Unknown]
  - Infection [Recovering/Resolving]
  - Nausea [Unknown]
  - Diarrhoea [Unknown]
